FAERS Safety Report 8259055-9 (Version None)
Quarter: 2012Q2

REPORT INFORMATION
  Report Type: 
  Country: None (occurrence: None)
  Receive Date: 20120404
  Receipt Date: 20120327
  Transmission Date: 20120825
  Serious: Yes (Death, Life-Threatening, Hospitalization, Disabling)
  Sender: FDA-Public Use
  Company Number: US-ROCHE-1042478

PATIENT
  Sex: Female
  Weight: 84.5 kg

DRUGS (24)
  1. LITHIUM CARBONATE [Concomitant]
     Indication: DEPRESSION
     Route: 048
     Dates: start: 20110413, end: 20120306
  2. RED CELLS PACK [Concomitant]
     Indication: ANAEMIA
     Dosage: 3 UNITS
     Route: 042
     Dates: start: 20110614, end: 20110614
  3. PEGINTERFERON ALFA-2A [Suspect]
     Route: 058
     Dates: start: 20110420, end: 20110629
  4. RABEPRAZOLE SODIUM [Concomitant]
     Indication: GASTROOESOPHAGEAL REFLUX DISEASE
     Route: 048
     Dates: start: 20110720, end: 20120306
  5. COPEGUS [Suspect]
     Dates: start: 20110705
  6. ZOLPIDEM [Concomitant]
     Indication: INSOMNIA
     Route: 048
     Dates: start: 20110316, end: 20120306
  7. PEGINTERFERON ALFA-2A [Suspect]
     Indication: HEPATITIS C
     Route: 058
     Dates: start: 20110316, end: 20110420
  8. LASIX [Concomitant]
     Dosage: FOR PROPHYLAXIS OF BLOOD TRANSFUSION
     Route: 042
     Dates: start: 20110614, end: 20110614
  9. DIPHENHYDRAMINE HCL [Concomitant]
     Dosage: FOR PROPHYLAXIS OF BLOOD TRANSFUSION
     Route: 048
     Dates: start: 20110614, end: 20110614
  10. ACETAMINOPHEN [Concomitant]
     Dosage: FOR PROPHYLAXIS OF BLOOD TRANSFUSION
     Route: 048
     Dates: start: 20110614, end: 20110614
  11. PROTONIX [Concomitant]
     Dosage: FOR REFLUX (HOSPITAL SUBSTIUTUE FOR ACIPHELEX)
     Route: 048
     Dates: start: 20110826, end: 20110906
  12. RO 5466731 (HCV NS5B INHIBITOR) [Suspect]
     Indication: HEPATITIS C
     Dosage: DATE OF DICONTINUATION: 05/JUL/2011
     Dates: start: 20110316, end: 20110705
  13. COPEGUS [Suspect]
     Indication: HEPATITIS C
     Route: 048
     Dates: start: 20110316, end: 20110427
  14. COPEGUS [Suspect]
     Dates: start: 20110705, end: 20110705
  15. PROMETHAZINE [Concomitant]
     Indication: NAUSEA
     Route: 048
     Dates: start: 20110613, end: 20110817
  16. ALPRAZOLAM [Concomitant]
     Indication: ANXIETY
     Route: 048
     Dates: start: 20110413, end: 20120306
  17. PEGINTERFERON ALFA-2A [Suspect]
     Dates: start: 20110629, end: 20110629
  18. PEGINTERFERON ALFA-2A [Suspect]
     Dates: start: 20110629
  19. SPIRONOLACTONE [Concomitant]
     Indication: OEDEMA
     Route: 048
     Dates: start: 20110802, end: 20120306
  20. LORTAB [Concomitant]
     Indication: ARTHRITIS
     Dosage: DOSE: 10/500MG
     Route: 048
     Dates: start: 20110316, end: 20120306
  21. LASIX [Concomitant]
     Indication: FLUID OVERLOAD
     Dosage: FOR VOLUME OVERLOAD FROM HIGH DOSE STEROIDS
     Route: 048
     Dates: start: 20110901, end: 20120306
  22. EPOETIN ALFA [Concomitant]
     Indication: ANAEMIA
     Dosage: 4000 UNITS
     Route: 058
     Dates: start: 20110421, end: 20110705
  23. COPEGUS [Suspect]
     Route: 048
     Dates: start: 20110427, end: 20110510
  24. COPEGUS [Suspect]
     Route: 048
     Dates: start: 20110510, end: 20110705

REACTIONS (4)
  - PNEUMONIA [None]
  - PULMONARY VASCULITIS [None]
  - PANCYTOPENIA [None]
  - B-CELL LYMPHOMA STAGE IV [None]
